FAERS Safety Report 24421251 (Version 1)
Quarter: 2024Q4

REPORT INFORMATION
  Report Type: Spontaneous
  Country: US (occurrence: US)
  Receive Date: 20241010
  Receipt Date: 20241010
  Transmission Date: 20250114
  Serious: Yes (Life-Threatening, Hospitalization)
  Sender: ACCORD
  Company Number: US-MLMSERVICE-20240923-PI202513-00050-1

PATIENT
  Age: 59 Year
  Sex: Male

DRUGS (1)
  1. AMLODIPINE [Suspect]
     Active Substance: AMLODIPINE BESYLATE

REACTIONS (5)
  - Accidental overdose [Unknown]
  - Sinus bradycardia [Recovered/Resolved]
  - Respiratory failure [Recovered/Resolved]
  - Shock [Recovered/Resolved]
  - Hypervolaemia [Recovered/Resolved]
